FAERS Safety Report 21493098 (Version 2)
Quarter: 2022Q4

REPORT INFORMATION
  Report Type: Report from Study
  Country: US (occurrence: US)
  Receive Date: 20221021
  Receipt Date: 20221117
  Transmission Date: 20230113
  Serious: Yes (Hospitalization, Other)
  Sender: FDA-Public Use
  Company Number: US-BRISTOL-MYERS SQUIBB COMPANY-2022-122840

PATIENT
  Age: 86 Year
  Sex: Male
  Weight: 80.74 kg

DRUGS (1)
  1. REVLIMID [Suspect]
     Active Substance: LENALIDOMIDE
     Indication: Plasma cell myeloma
     Dosage: EVERY OTHER DAY OF 1-21 DAYS OF 28 DAYS CYCLE
     Route: 048

REACTIONS (6)
  - Pruritus [Recovered/Resolved]
  - Sinusitis [Unknown]
  - Fall [Unknown]
  - Clostridium difficile infection [Unknown]
  - Pneumonia [Unknown]
  - Illness [Unknown]
